FAERS Safety Report 17871684 (Version 1)
Quarter: 2020Q2

REPORT INFORMATION
  Report Type: Spontaneous
  Country: HR (occurrence: HR)
  Receive Date: 20200608
  Receipt Date: 20200608
  Transmission Date: 20200714
  Serious: Yes (Hospitalization, Other)
  Sender: FDA-Public Use
  Company Number: HR-ASTELLAS-2020US019084

PATIENT
  Sex: Male

DRUGS (9)
  1. ADVAGRAF [Suspect]
     Active Substance: TACROLIMUS
     Route: 065
     Dates: start: 202003
  2. PROGRAF [Suspect]
     Active Substance: TACROLIMUS
     Indication: RENAL TRANSPLANT
     Dosage: UNK UNK, UNKNOWN FREQ.
     Route: 065
  3. ADVAGRAF [Suspect]
     Active Substance: TACROLIMUS
     Indication: RENAL TRANSPLANT
     Dosage: UNK UNK, UNKNOWN FREQ.
     Route: 065
  4. MMF [Concomitant]
     Active Substance: MYCOPHENOLATE MOFETIL
     Route: 065
  5. MMF [Concomitant]
     Active Substance: MYCOPHENOLATE MOFETIL
     Route: 065
  6. MMF [Concomitant]
     Active Substance: MYCOPHENOLATE MOFETIL
     Route: 065
     Dates: start: 20200203
  7. ADVAGRAF [Suspect]
     Active Substance: TACROLIMUS
     Route: 065
     Dates: start: 20200203
  8. MMF [Concomitant]
     Active Substance: MYCOPHENOLATE MOFETIL
     Route: 065
  9. MMF [Concomitant]
     Active Substance: MYCOPHENOLATE MOFETIL
     Indication: RENAL TRANSPLANT
     Dosage: UNK UNK, UNKNOWN FREQ.
     Route: 065

REACTIONS (5)
  - COVID-19 [Recovered/Resolved]
  - BK virus infection [Unknown]
  - Blood creatinine increased [Unknown]
  - Histology abnormal [Recovered/Resolved]
  - Nasopharyngitis [Unknown]

NARRATIVE: CASE EVENT DATE: 2019
